FAERS Safety Report 5237037-9 (Version None)
Quarter: 2007Q1

REPORT INFORMATION
  Report Type: 
  Country: None (occurrence: None)
  Receive Date: 20070209
  Receipt Date: 20070129
  Transmission Date: 20070707
  Serious: Yes (Death)
  Sender: FDA-Public Use
  Company Number: FSC_0037_2007

PATIENT
  Age: 30 Year
  Sex: Male

DRUGS (1)
  1. VASOLAN [Suspect]
     Indication: VENTRICULAR ARRHYTHMIA
     Dosage: 407 TAB ONCE PO
     Route: 048

REACTIONS (7)
  - ABNORMAL BEHAVIOUR [None]
  - CARDIO-RESPIRATORY ARREST [None]
  - CARDIOVASCULAR INSUFFICIENCY [None]
  - CONVULSION [None]
  - DRUG TOXICITY [None]
  - DYSARTHRIA [None]
  - PULMONARY OEDEMA [None]
